FAERS Safety Report 8632181 (Version 2)
Quarter: 2013Q3

REPORT INFORMATION
  Report Type: Spontaneous
  Country: JP (occurrence: JP)
  Receive Date: 20120625
  Receipt Date: 20130708
  Transmission Date: 20140515
  Serious: Yes (Death, Hospitalization)
  Sender: FDA-Public Use
  Company Number: JP-ASTELLAS-2012JP005055

PATIENT
  Age: 75 Year
  Sex: Female
  Weight: 48 kg

DRUGS (38)
  1. PROGRAF [Suspect]
     Indication: COLITIS ULCERATIVE
     Dosage: 2.5 MG, BID
     Route: 048
     Dates: start: 20120307, end: 20120513
  2. PREDONINE /00016201/ [Suspect]
     Indication: COLITIS ULCERATIVE
     Dosage: 30 MG, UNKNOWN/D
     Route: 048
     Dates: start: 20091222, end: 20100104
  3. PREDONINE /00016201/ [Suspect]
     Dosage: 25 MG, UNKNOWN/D
     Route: 048
     Dates: start: 20100105, end: 20100118
  4. PREDONINE /00016201/ [Suspect]
     Dosage: 20 MG, UNKNOWN/D
     Route: 048
     Dates: start: 20100119, end: 20100201
  5. PREDONINE /00016201/ [Suspect]
     Dosage: 15 MG, UNKNOWN/D
     Route: 048
     Dates: start: 20100202, end: 20100215
  6. PREDONINE /00016201/ [Suspect]
     Dosage: 10 MG, UNKNOWN/D
     Route: 048
     Dates: start: 20100216, end: 20100308
  7. PREDONINE /00016201/ [Suspect]
     Dosage: 5 MG, UNKNOWN/D
     Route: 048
     Dates: start: 20100309, end: 20100405
  8. PREDONINE /00016201/ [Suspect]
     Dosage: 2.5 MG, UNKNOWN/D
     Route: 048
     Dates: start: 20100406, end: 20100510
  9. PREDONINE /00016201/ [Suspect]
     Dosage: 25 MG, UNKNOWN/D
     Route: 048
     Dates: start: 20100511, end: 20100524
  10. PREDONINE /00016201/ [Suspect]
     Dosage: 20 MG, UNKNOWN/D
     Route: 048
     Dates: start: 20100525, end: 20100607
  11. PREDONINE /00016201/ [Suspect]
     Dosage: 15 MG, UNKNOWN/D
     Route: 048
     Dates: start: 20100608, end: 20100621
  12. PREDONINE /00016201/ [Suspect]
     Dosage: 10 MG, UNKNOWN/D
     Route: 048
     Dates: start: 20100622, end: 20100719
  13. PREDONINE /00016201/ [Suspect]
     Dosage: 5 MG, UNKNOWN/D
     Route: 048
     Dates: start: 20100720, end: 201010
  14. PREDONINE /00016201/ [Suspect]
     Dosage: 20 MG, UNKNOWN/D
     Route: 048
     Dates: start: 201010, end: 201107
  15. PREDONINE /00016201/ [Suspect]
     Dosage: 30 MG, UNKNOWN/D
     Route: 048
     Dates: start: 201107, end: 201110
  16. PREDONINE /00016201/ [Suspect]
     Dosage: 20 MG, UNKNOWN/D
     Route: 048
     Dates: start: 201110, end: 201112
  17. PREDONINE /00016201/ [Suspect]
     Dosage: 10 MG, UNKNOWN/D
     Route: 048
     Dates: start: 201112, end: 20120110
  18. PREDONINE /00016201/ [Suspect]
     Dosage: 7.5 MG, UNKNOWN/D
     Route: 048
     Dates: start: 20120111, end: 20120117
  19. PREDONINE /00016201/ [Suspect]
     Dosage: 5 MG, UNKNOWN/D
     Route: 048
     Dates: start: 20120118, end: 20120322
  20. PREDONINE /00016201/ [Suspect]
     Dosage: 30 MG, UNKNOWN/D
     Route: 048
     Dates: start: 20120323, end: 20120404
  21. PREDONINE /00016201/ [Suspect]
     Dosage: 40 MG, UNKNOWN/D
     Route: 048
     Dates: start: 20120426, end: 20120502
  22. PREDONINE /00016201/ [Suspect]
     Dosage: 30 MG, UNKNOWN/D
     Route: 048
     Dates: start: 20120503, end: 20120509
  23. PREDONINE /00016201/ [Suspect]
     Dosage: 25 MG, UNKNOWN/D
     Route: 048
     Dates: start: 20120510, end: 20120514
  24. PREDONINE /00016201/ [Suspect]
     Indication: COLITIS ULCERATIVE
     Dosage: 60 MG, UNKNOWN/D
     Route: 042
     Dates: start: 20120405, end: 20120411
  25. PREDONINE /00016201/ [Suspect]
     Dosage: 50 MG, UNKNOWN/D
     Route: 042
     Dates: start: 20120412, end: 20120418
  26. PREDONINE /00016201/ [Suspect]
     Dosage: 40 MG, UNKNOWN/D
     Route: 042
     Dates: start: 20120419, end: 20120425
  27. PREDONINE /00016201/ [Suspect]
     Dosage: 50 MG, UNKNOWN/D
     Route: 042
     Dates: start: 20120515, end: 20120601
  28. REMICADE [Suspect]
     Indication: COLITIS ULCERATIVE
     Dosage: UNK
     Route: 041
     Dates: start: 20120214, end: 20120228
  29. PENTASA [Concomitant]
     Indication: COLITIS ULCERATIVE
     Dosage: 2 G, BID
     Route: 048
     Dates: start: 20090413, end: 20120514
  30. PENTASA [Concomitant]
     Indication: COLITIS ULCERATIVE
     Dosage: 1 G, UID/QD
     Route: 054
     Dates: start: 20090910, end: 20120514
  31. GASTER [Concomitant]
     Indication: GASTRODUODENAL ULCER
     Dosage: 20 MG, UID/QD
     Route: 048
     Dates: end: 20120511
  32. TAKEPRON [Concomitant]
     Indication: GASTRODUODENAL ULCER
     Dosage: 30 MG, UID/QD
     Route: 048
     Dates: start: 20120512, end: 20120514
  33. BITSAN [Concomitant]
     Indication: GASTRODUODENAL ULCER
     Dosage: 1.4 G, TID
     Route: 048
     Dates: start: 20120512, end: 20120514
  34. LIPITOR [Concomitant]
     Indication: HYPERLIPIDAEMIA
     Dosage: 10 MG, UID/QD
     Route: 048
     Dates: start: 20031031, end: 20120514
  35. NORVASC [Concomitant]
     Indication: HYPERTENSION
     Dosage: 5 MG, UID/QD
     Route: 048
     Dates: start: 2011, end: 20120514
  36. EVISTA [Concomitant]
     Indication: OSTEOPOROSIS
     Dosage: 60 MG, UID/QD
     Route: 048
     Dates: start: 20050914, end: 20120514
  37. RINDERON                           /00008501/ [Concomitant]
     Indication: COLITIS ULCERATIVE
     Route: 054
  38. FLUID [Concomitant]
     Route: 065

REACTIONS (5)
  - Drug ineffective [Unknown]
  - Colitis ulcerative [Unknown]
  - Pneumocystis jirovecii pneumonia [Fatal]
  - Bronchopulmonary aspergillosis [Fatal]
  - Cytomegalovirus enterocolitis [Unknown]
